FAERS Safety Report 6566427-7 (Version None)
Quarter: 2010Q1

REPORT INFORMATION
  Report Type: 
  Country: None (occurrence: None)
  Receive Date: 20100202
  Receipt Date: 20100120
  Transmission Date: 20100710
  Serious: Yes (Other)
  Sender: FDA-Public Use
  Company Number: PHHY2010FR03108

PATIENT
  Age: 75 Year
  Sex: Male

DRUGS (3)
  1. EUCREAS [Suspect]
     Indication: TYPE 2 DIABETES MELLITUS
     Dosage: 1 TABLET (1000/50 MG), BID
     Route: 048
  2. DIAMICRON [Concomitant]
  3. TAMSULOSIN [Concomitant]

REACTIONS (2)
  - BLOOD GLUCOSE INCREASED [None]
  - POLYURIA [None]
